FAERS Safety Report 20600485 (Version 8)
Quarter: 2023Q2

REPORT INFORMATION
  Report Type: Report from Study
  Country: CO (occurrence: CO)
  Receive Date: 20220316
  Receipt Date: 20230501
  Transmission Date: 20230722
  Serious: Yes (Hospitalization, Other)
  Sender: FDA-Public Use
  Company Number: CO-NOVARTISPH-NVSC2022CO058573

PATIENT
  Sex: Male

DRUGS (3)
  1. COSENTYX [Suspect]
     Active Substance: SECUKINUMAB
     Indication: Psoriasis
     Dosage: 300 MG, Q2W (2 INJECTIONS OF 150 MG)
     Route: 058
  2. COSENTYX [Suspect]
     Active Substance: SECUKINUMAB
     Dosage: 300 MG, QMO
     Route: 058
  3. COSENTYX [Suspect]
     Active Substance: SECUKINUMAB
     Dosage: 150 MG, Q2W
     Route: 065

REACTIONS (11)
  - Cerebrovascular accident [Unknown]
  - Thrombosis [Unknown]
  - Mental disorder [Unknown]
  - Memory impairment [Unknown]
  - Fall [Unknown]
  - Gait disturbance [Recovered/Resolved]
  - Skin exfoliation [Recovered/Resolved]
  - Psoriasis [Not Recovered/Not Resolved]
  - Pruritus [Unknown]
  - Malaise [Unknown]
  - Inappropriate schedule of product administration [Unknown]
